FAERS Safety Report 4955005-9 (Version None)
Quarter: 2006Q1

REPORT INFORMATION
  Report Type: 
  Country: None (occurrence: None)
  Receive Date: 20060322
  Receipt Date: 20060310
  Transmission Date: 20060701
  Serious: Yes (Death)
  Sender: FDA-Public Use
  Company Number: 2005128887

PATIENT
  Age: 75 Year
  Sex: Female

DRUGS (15)
  1. NEURONTIN [Suspect]
     Indication: ANXIETY
     Dosage: 1200 MG (300 MG, 4 IN 1 D), ORAL
     Route: 048
     Dates: start: 20011201
  2. NEURONTIN [Suspect]
     Indication: DEPRESSION
     Dosage: 1200 MG (300 MG, 4 IN 1 D), ORAL
     Route: 048
     Dates: start: 20011201
  3. NEURONTIN [Suspect]
     Indication: NERVOUSNESS
     Dosage: 1200 MG (300 MG, 4 IN 1 D), ORAL
     Route: 048
     Dates: start: 20011201
  4. NEURONTIN [Suspect]
     Indication: PAIN
     Dosage: 1200 MG (300 MG, 4 IN 1 D), ORAL
     Route: 048
     Dates: start: 20011201
  5. LIDOCAINE [Concomitant]
  6. ESTRADIOL [Concomitant]
  7. HYDROCHLOROTHIAZIDE/TRIAMTERENE (HYDROCHLOROTHIAZIDE, TRIAMTERENE) [Concomitant]
  8. SYNTHROID [Concomitant]
  9. LABETALOL HCL [Concomitant]
  10. AMITRIPTYLINE HCL [Concomitant]
  11. ALPRAZOLAM [Concomitant]
  12. FUROSEMIDE [Concomitant]
  13. CIPROFLOXACIN [Concomitant]
  14. COMBIVENT [Concomitant]
  15. REMERON [Concomitant]

REACTIONS (7)
  - CEREBRAL DISORDER [None]
  - COMPLETED SUICIDE [None]
  - DRUG INEFFECTIVE [None]
  - GUN SHOT WOUND [None]
  - LACERATION [None]
  - SUBARACHNOID HAEMORRHAGE [None]
  - SUBDURAL HAEMORRHAGE [None]
